FAERS Safety Report 4487370-3 (Version None)
Quarter: 2004Q4

REPORT INFORMATION
  Report Type: 
  Country: None (occurrence: None)
  Receive Date: 20041022
  Receipt Date: 20041008
  Transmission Date: 20050328
  Serious: Yes (Hospitalization)
  Sender: FDA-Public Use
  Company Number: 209767

PATIENT
  Age: 58 Year
  Sex: Female

DRUGS (2)
  1. HERCEPTIN [Suspect]
     Indication: DRUG USE FOR UNKNOWN INDICATION
     Dosage: INTRAVENOUS
     Route: 042
  2. TAXOTERE [Concomitant]

REACTIONS (2)
  - BRONCHIAL OBSTRUCTION [None]
  - CLONIC CONVULSION [None]
